FAERS Safety Report 7886185-3 (Version None)
Quarter: 2011Q4

REPORT INFORMATION
  Report Type: 
  Country: None (occurrence: None)
  Receive Date: 20111102
  Receipt Date: 20110627
  Transmission Date: 20120403
  Serious: No
  Sender: FDA-Public Use
  Company Number: US-AMGEN-USASP2011032848

PATIENT
  Age: 43 Year
  Sex: Female
  Weight: 87.982 kg

DRUGS (8)
  1. METHOTREXATE [Concomitant]
     Indication: PSORIATIC ARTHROPATHY
     Dosage: UNK
     Dates: start: 20081101
  2. FOLIC ACID [Concomitant]
  3. ENBREL [Suspect]
     Indication: PRODUCT USED FOR UNKNOWN INDICATION
     Dosage: UNK
  4. HUMIRA [Concomitant]
     Indication: PSORIATIC ARTHROPATHY
     Dosage: 40 MG, Q2WK
     Dates: start: 20110401
  5. OLMESARTAN MEDOXOMIL [Concomitant]
     Indication: HYPERTENSION
     Dosage: UNK
  6. CARISOPRODOL [Concomitant]
     Dosage: UNK
  7. MULTI-VITAMINS [Concomitant]
     Dosage: UNK
  8. TRAMADOL HCL [Concomitant]
     Indication: PAIN
     Dosage: UNK UNK, PRN

REACTIONS (2)
  - INCREASED TENDENCY TO BRUISE [None]
  - BACK PAIN [None]
